FAERS Safety Report 22342627 (Version 2)
Quarter: 2023Q2

REPORT INFORMATION
  Report Type: Spontaneous
  Country: US (occurrence: US)
  Receive Date: 20230519
  Receipt Date: 20230531
  Transmission Date: 20230722
  Serious: No
  Sender: FDA-Public Use
  Company Number: US-BIOGEN-2023BI01204894

PATIENT
  Sex: Female

DRUGS (1)
  1. TYSABRI [Suspect]
     Active Substance: NATALIZUMAB
     Indication: Multiple sclerosis
     Route: 050
     Dates: start: 20200921

REACTIONS (6)
  - Poor venous access [Unknown]
  - Multiple sclerosis relapse [Unknown]
  - Infusion site bruising [Unknown]
  - Blood blister [Unknown]
  - Infusion site reaction [Unknown]
  - Illness [Unknown]
